FAERS Safety Report 9047875 (Version 1)
Quarter: 2013Q1

REPORT INFORMATION
  Report Type: Spontaneous
  Country: US (occurrence: US)
  Receive Date: 20130204
  Receipt Date: 20130204
  Transmission Date: 20140127
  Serious: No
  Sender: FDA-Public Use
  Company Number: US-AMGEN-USASP2012077660

PATIENT
  Age: 36 Year
  Sex: Female

DRUGS (1)
  1. ENBREL [Suspect]
     Indication: HIDRADENITIS
     Dosage: 50 MG, 2 TIMES/WK
     Route: 058
     Dates: start: 20121108

REACTIONS (4)
  - Joint swelling [Recovering/Resolving]
  - Back pain [Not Recovered/Not Resolved]
  - Hidradenitis [Not Recovered/Not Resolved]
  - Arthralgia [Recovering/Resolving]
